FAERS Safety Report 24156852 (Version 1)
Quarter: 2024Q3

REPORT INFORMATION
  Report Type: Spontaneous
  Country: US (occurrence: None)
  Receive Date: 20240730
  Receipt Date: 20240730
  Transmission Date: 20241017
  Serious: No
  Sender: Public
  Company Number: None

PATIENT
  Age: 56 Year
  Sex: Female

DRUGS (1)
  1. XDEMVY [Suspect]
     Active Substance: LOTILANER
     Indication: Demodex blepharitis
     Dosage: 1 DROPP(S) -GTT BID INTRAOCULAR?
     Route: 031
     Dates: start: 20240627, end: 20240730

REACTIONS (5)
  - Eye irritation [None]
  - Dry eye [None]
  - Keratitis [None]
  - Viral infection [None]
  - Therapy interrupted [None]

NARRATIVE: CASE EVENT DATE: 20240728
